FAERS Safety Report 9909732 (Version 1)
Quarter: 2014Q1

REPORT INFORMATION
  Report Type: Spontaneous
  Country: US (occurrence: None)
  Receive Date: 20140218
  Receipt Date: 20140218
  Transmission Date: 20141002
  Serious: Yes (Disabling)
  Sender: FDA-Public Use
  Company Number: None

PATIENT
  Age: 50 Year
  Sex: Female
  Weight: 70.31 kg

DRUGS (1)
  1. ASTELIN [Suspect]
     Indication: MULTIPLE ALLERGIES

REACTIONS (4)
  - Sinus disorder [None]
  - Sinusitis [None]
  - Snoring [None]
  - Reaction to preservatives [None]
